FAERS Safety Report 5123984-5 (Version None)
Quarter: 2006Q3

REPORT INFORMATION
  Report Type: 
  Country: None (occurrence: None)
  Receive Date: 20060811
  Receipt Date: 20060417
  Transmission Date: 20061208
  Serious: No
  Sender: FDA-Public Use
  Company Number: S06-USA-01531-01

PATIENT
  Age: 79 Year
  Sex: Male

DRUGS (9)
  1. NAMENDA [Suspect]
     Indication: DEMENTIA ALZHEIMER'S TYPE
     Dosage: 5 MG QD PO
     Route: 048
     Dates: start: 20060414
  2. NEXIUM [Concomitant]
  3. ARICEPT [Concomitant]
  4. COREG [Concomitant]
  5. GLYNASE [Concomitant]
  6. PERSANTINE (DIPYRIDAMOMLE) [Concomitant]
  7. AVAPRO [Concomitant]
  8. LIPITOR [Concomitant]
  9. LASIX [Concomitant]

REACTIONS (3)
  - DIZZINESS [None]
  - HEADACHE [None]
  - SOMNOLENCE [None]
